FAERS Safety Report 5225910-7 (Version None)
Quarter: 2007Q1

REPORT INFORMATION
  Report Type: 
  Country: None (occurrence: None)
  Receive Date: 20070129
  Receipt Date: 20070119
  Transmission Date: 20070707
  Serious: Yes (Hospitalization, Other)
  Sender: FDA-Public Use
  Company Number: HQWYE988519JAN07

PATIENT
  Age: 55 Year
  Sex: Female

DRUGS (4)
  1. PROPRANOLOL HYDROCHLORIDE [Suspect]
     Indication: HYPERTENSION
     Dosage: 20 MG 2X PER 1 DAY
     Route: 048
     Dates: start: 20030101
  2. ESBERIVEN (MELILOT/RUTOSIDE, ) [Suspect]
     Indication: VARICOSE VEIN
     Dosage: 2 DOSAGE FORM 1X PER 1 DAY
     Route: 048
     Dates: start: 20050601
  3. ESTRADIOL [Suspect]
     Dosage: 2 DOSAGE FORM 1X PER 1 WK
     Route: 048
     Dates: start: 20000101, end: 20050812
  4. ZOLPIDEM TARTRATE [Suspect]
     Dosage: 1 DOSAGE FORM 1X PER 1 DAY
     Route: 048
     Dates: start: 20030101

REACTIONS (3)
  - BLOOD CHOLESTEROL INCREASED [None]
  - BLOOD PRESSURE DIASTOLIC DECREASED [None]
  - CEREBROVASCULAR ACCIDENT [None]
